FAERS Safety Report 18324837 (Version 1)
Quarter: 2020Q3

REPORT INFORMATION
  Report Type: Spontaneous
  Country: US (occurrence: US)
  Receive Date: 20200928
  Receipt Date: 20200928
  Transmission Date: 20201103
  Serious: No
  Sender: FDA-Public Use
  Company Number: US-SEATTLE GENETICS-2020SGN00052

PATIENT
  Sex: Male

DRUGS (1)
  1. ADCETRIS [Suspect]
     Active Substance: BRENTUXIMAB VEDOTIN
     Indication: CUTANEOUS T-CELL LYMPHOMA
     Dosage: 140 MG, Q21D
     Route: 042
     Dates: start: 20191118, end: 20200102

REACTIONS (3)
  - Sensory disturbance [Unknown]
  - Infusion related reaction [Unknown]
  - Pain of skin [Unknown]
